FAERS Safety Report 6708119-7 (Version None)
Quarter: 2010Q2

REPORT INFORMATION
  Report Type: 
  Country: None (occurrence: None)
  Receive Date: 20100503
  Receipt Date: 20090911
  Transmission Date: 20101027
  Serious: No
  Sender: FDA-Public Use
  Company Number: US-ASTRAZENECA-2009SE13075

PATIENT
  Sex: Female

DRUGS (5)
  1. NEXIUM [Suspect]
     Dosage: ONCE DAILY
     Route: 048
     Dates: start: 20090906
  2. NEXIUM [Suspect]
     Dosage: TWICE DAILY
     Route: 048
     Dates: start: 20090906
  3. GABAPENTIN [Concomitant]
  4. SERTRALINE HYDROCHLORIDE [Concomitant]
  5. AMITRIPTYLINE [Concomitant]

REACTIONS (2)
  - HEADACHE [None]
  - NERVOUSNESS [None]
